FAERS Safety Report 14943100 (Version 1)
Quarter: 2018Q2

REPORT INFORMATION
  Report Type: Spontaneous
  Country: CZ (occurrence: CZ)
  Receive Date: 20180528
  Receipt Date: 20180528
  Transmission Date: 20180711
  Serious: Yes (Other)
  Sender: FDA-Public Use
  Company Number: CZ-AMGEN-CZESP2018069391

PATIENT
  Sex: Female

DRUGS (5)
  1. PROLIA [Suspect]
     Active Substance: DENOSUMAB
     Indication: PRODUCT USED FOR UNKNOWN INDICATION
     Dosage: UNK
     Route: 065
     Dates: start: 2014
  2. MAGNESIUM [Concomitant]
     Active Substance: MAGNESIUM
  3. VIGANTOL [Concomitant]
     Active Substance: CHOLECALCIFEROL
  4. TAMOXIFEN [Concomitant]
     Active Substance: TAMOXIFEN
  5. CALCICHEW [Concomitant]
     Active Substance: CALCIUM CARBONATE

REACTIONS (2)
  - Osteoporotic fracture [Unknown]
  - Osteonecrosis [Unknown]
